FAERS Safety Report 12960255 (Version 1)
Quarter: 2016Q4

REPORT INFORMATION
  Report Type: Spontaneous
  Country: US (occurrence: None)
  Receive Date: 20161115
  Receipt Date: 20161115
  Transmission Date: 20170207
  Serious: Yes (Other)
  Sender: FDA-Public Use
  Company Number: 2016HINSPO0158

PATIENT
  Sex: Female

DRUGS (1)
  1. LEVETRIACETAM (LEVITIRACETAM) UNKNOWN [Suspect]
     Active Substance: LEVETIRACETAM
     Indication: PRODUCT USED FOR UNKNOWN INDICATION

REACTIONS (2)
  - Dysphagia [None]
  - Seizure [None]
